FAERS Safety Report 8801362 (Version 2)
Quarter: 2012Q4

REPORT INFORMATION
  Report Type: 
  Country: DE (occurrence: DE)
  Receive Date: 20120921
  Receipt Date: 20121017
  Transmission Date: 20130627
  Serious: Yes (Hospitalization)
  Sender: FDA-Public Use
  Company Number: DE-AMGEN-DEUSP2012059204

PATIENT
  Age: 80 Year
  Sex: Female
  Weight: 69 kg

DRUGS (2)
  1. PROLIA [Suspect]
     Indication: OSTEOPOROSIS
     Dosage: 60 mg, q6mo
     Route: 058
     Dates: start: 20110209
  2. CALCIMAGON D3 [Concomitant]
     Indication: OSTEOPOROSIS
     Dosage: 1 mg, qd
     Route: 048
     Dates: start: 1997, end: 201208

REACTIONS (2)
  - Bladder transitional cell carcinoma recurrent [Recovered/Resolved]
  - Urinary tract infection [Unknown]
